FAERS Safety Report 11652243 (Version 1)
Quarter: 2015Q4

REPORT INFORMATION
  Report Type: Spontaneous
  Country: AT (occurrence: AT)
  Receive Date: 20151022
  Receipt Date: 20151022
  Transmission Date: 20160304
  Serious: No
  Sender: FDA-Public Use
  Company Number: AT-JNJFOC-20151013750

PATIENT
  Age: 75 Year
  Sex: Male

DRUGS (1)
  1. DUROGESIC D-TRANS [Suspect]
     Active Substance: FENTANYL
     Indication: PRODUCT USED FOR UNKNOWN INDICATION
     Route: 062

REACTIONS (4)
  - Drug administered at inappropriate site [Unknown]
  - Hyperhidrosis [Unknown]
  - Product quality issue [Unknown]
  - Poor quality drug administered [Unknown]
